FAERS Safety Report 17351572 (Version 1)
Quarter: 2020Q1

REPORT INFORMATION
  Report Type: Spontaneous
  Country: BE (occurrence: BE)
  Receive Date: 20200130
  Receipt Date: 20200130
  Transmission Date: 20200409
  Serious: Yes (Other)
  Sender: FDA-Public Use
  Company Number: BE-MYLANLABS-2020M1010854

PATIENT
  Sex: Female

DRUGS (3)
  1. ORLISTAT. [Concomitant]
     Active Substance: ORLISTAT
     Dosage: UNK UNK, UNK (SINCE END OF SEPTEMBER )
     Route: 065
  2. VALPROIC ACID. [Suspect]
     Active Substance: VALPROIC ACID
     Indication: PRODUCT USED FOR UNKNOWN INDICATION
     Dosage: UNK UNK, UNK (STRENGTH: 500)
     Route: 065
  3. ETHINYLESTRADIOL [Concomitant]
     Active Substance: ETHINYL ESTRADIOL
     Dosage: UNK UNK, UNK
     Route: 065

REACTIONS (3)
  - Epilepsy [Unknown]
  - Drug ineffective [Unknown]
  - Anticonvulsant drug level decreased [Unknown]
